FAERS Safety Report 6228530-0 (Version None)
Quarter: 2009Q2

REPORT INFORMATION
  Report Type: 
  Country: None (occurrence: None)
  Receive Date: 20090612
  Receipt Date: 20090603
  Transmission Date: 20091009
  Serious: Yes (Other)
  Sender: FDA-Public Use
  Company Number: PHHY2009ZA07097

PATIENT
  Sex: Male

DRUGS (3)
  1. RITALIN LA [Suspect]
     Indication: ATTENTION DEFICIT/HYPERACTIVITY DISORDER
     Dosage: 20 MG DAILY
  2. RITALIN LA [Suspect]
     Dosage: 20 MG, BID
     Dates: start: 20090224
  3. CIPRAMIL [Concomitant]
     Dosage: ONE AND HALF TABLETS DAILY

REACTIONS (2)
  - DEPRESSION [None]
  - SUICIDE ATTEMPT [None]
